FAERS Safety Report 25277232 (Version 3)
Quarter: 2025Q3

REPORT INFORMATION
  Report Type: Spontaneous
  Country: US (occurrence: US)
  Receive Date: 20250507
  Receipt Date: 20250825
  Transmission Date: 20251020
  Serious: Yes (Other)
  Sender: AMGEN
  Company Number: US-AMGEN-USASP2025087788

PATIENT
  Sex: Female

DRUGS (7)
  1. REPATHA [Suspect]
     Active Substance: EVOLOCUMAB
     Indication: Product used for unknown indication
     Dosage: 140 MILLIGRAM, Q2WK
     Route: 065
  2. ASPIRIN [Concomitant]
     Active Substance: ASPIRIN
     Dates: start: 20250321
  3. AMIODARONE [Concomitant]
     Active Substance: AMIODARONE
     Dates: start: 20250321
  4. ELIQUIS [Concomitant]
     Active Substance: APIXABAN
     Dates: start: 20250321
  5. AMLODIPINE [Concomitant]
     Active Substance: AMLODIPINE BESYLATE
     Dates: start: 20250321
  6. LOSARTAN [Concomitant]
     Active Substance: LOSARTAN
     Dates: start: 20250321
  7. HYDRALAZINE [Concomitant]
     Active Substance: HYDRALAZINE HYDROCHLORIDE
     Dates: start: 20250321

REACTIONS (1)
  - Angioedema [Unknown]
